FAERS Safety Report 24902563 (Version 2)
Quarter: 2025Q1

REPORT INFORMATION
  Report Type: Spontaneous
  Country: DE (occurrence: DE)
  Receive Date: 20250130
  Receipt Date: 20250325
  Transmission Date: 20250409
  Serious: No
  Sender: EMD SERONO INC
  Company Number: DE-Merck Healthcare KGaA-2025000310

PATIENT
  Age: 11 Year
  Sex: Male

DRUGS (2)
  1. SAIZEN [Suspect]
     Active Substance: SOMATROPIN
     Indication: Small for dates baby
     Dates: start: 202410, end: 20241227
  2. SAIZEN [Suspect]
     Active Substance: SOMATROPIN
     Indication: Short stature

REACTIONS (3)
  - Pain in extremity [Unknown]
  - Bone marrow oedema [Unknown]
  - Peripheral swelling [Unknown]

NARRATIVE: CASE EVENT DATE: 20241201
